FAERS Safety Report 5321324-X (Version None)
Quarter: 2007Q2

REPORT INFORMATION
  Report Type: 
  Country: None (occurrence: None)
  Receive Date: 20070507
  Receipt Date: 20070507
  Transmission Date: 20071010
  Serious: Yes (Hospitalization, Other)
  Sender: FDA-Public Use
  Company Number: None

PATIENT
  Age: 39 Year
  Sex: Female
  Weight: 102.9665 kg

DRUGS (1)
  1. CARDIZEM SR [Suspect]
     Indication: SUPRAVENTRICULAR TACHYCARDIA
     Dosage: 1 PILL -120 MG- 1 PER DAY PO
     Route: 048
     Dates: start: 20070325, end: 20070405

REACTIONS (5)
  - ABDOMINAL DISTENSION [None]
  - CHEST PAIN [None]
  - DYSPNOEA [None]
  - GASTROINTESTINAL DISORDER [None]
  - MUSCULOSKELETAL PAIN [None]
